FAERS Safety Report 16803021 (Version 1)
Quarter: 2019Q3

REPORT INFORMATION
  Report Type: Report from Study
  Country: None (occurrence: US)
  Receive Date: 20190913
  Receipt Date: 20190913
  Transmission Date: 20191005
  Serious: Yes (Hospitalization, Other)
  Sender: FDA-Public Use
  Company Number: US-ABBVIE-19K-163-2918100-00

PATIENT
  Age: 65 Year
  Sex: Female

DRUGS (1)
  1. HUMIRA [Suspect]
     Active Substance: ADALIMUMAB
     Indication: RHEUMATOID ARTHRITIS
     Route: 058

REACTIONS (9)
  - Malaise [Unknown]
  - Hysterectomy [Unknown]
  - Gastrooesophageal reflux disease [Unknown]
  - Hernia [Recovered/Resolved]
  - Tremor [Unknown]
  - Gait inability [Unknown]
  - Blood glucose decreased [Recovered/Resolved]
  - Cholelithiasis [Unknown]
  - Hernia [Unknown]

NARRATIVE: CASE EVENT DATE: 201909
